FAERS Safety Report 5371075-0 (Version None)
Quarter: 2007Q2

REPORT INFORMATION
  Report Type: 
  Country: None (occurrence: None)
  Receive Date: 20070615
  Receipt Date: 20070417
  Transmission Date: 20071010
  Serious: Yes (Other)
  Sender: FDA-Public Use
  Company Number: 200711906US

PATIENT
  Age: 51 Year
  Sex: Male

DRUGS (7)
  1. LANTUS [Suspect]
     Indication: DIABETES MELLITUS NON-INSULIN-DEPENDENT
     Dosage: 20 VIA VIAL U HS INJ
     Dates: start: 20070101, end: 20070309
  2. LANTUS [Suspect]
     Indication: DIABETES MELLITUS NON-INSULIN-DEPENDENT
     Dosage: 20 VIA PEN U HS INJ
     Dates: start: 20070310, end: 20070313
  3. LANTUS [Suspect]
     Indication: DIABETES MELLITUS NON-INSULIN-DEPENDENT
     Dosage: 20 VIA U HS INJ
     Dates: start: 20070314
  4. INSULIN (HUMALOG /00030301/) [Suspect]
     Dosage: 4 U AC
     Dates: start: 20070101
  5. OPTICLIK GREY [Suspect]
     Dates: start: 20070310, end: 20070301
  6. PIOGLITAZONE HYDROCHLORIDE (ACTOSE) [Concomitant]
  7. ALTACE [Concomitant]

REACTIONS (2)
  - HYPOGLYCAEMIA [None]
  - WRONG DRUG ADMINISTERED [None]
